FAERS Safety Report 10328581 (Version 1)
Quarter: 2014Q3

REPORT INFORMATION
  Report Type: Spontaneous
  Country: US (occurrence: US)
  Receive Date: 20140721
  Receipt Date: 20140721
  Transmission Date: 20150326
  Serious: Yes (Disabling, Other)
  Sender: FDA-Public Use
  Company Number: US-ELI_LILLY_AND_COMPANY-US201407003366

PATIENT
  Age: 32 Year
  Sex: Male
  Weight: 55.78 kg

DRUGS (1)
  1. HUMALOG [Suspect]
     Active Substance: INSULIN LISPRO
     Indication: PRODUCT USED FOR UNKNOWN INDICATION
     Route: 058

REACTIONS (6)
  - Blood glucose increased [Unknown]
  - Blindness [Not Recovered/Not Resolved]
  - Infusion site mass [Unknown]
  - Neuropathy peripheral [Unknown]
  - Impaired gastric emptying [Unknown]
  - Blood glucose decreased [Unknown]

NARRATIVE: CASE EVENT DATE: 201403
